FAERS Safety Report 6206998-3 (Version None)
Quarter: 2009Q2

REPORT INFORMATION
  Report Type: 
  Country: None (occurrence: None)
  Receive Date: 20090521
  Receipt Date: 20081107
  Transmission Date: 20091009
  Serious: Yes (Other)
  Sender: FDA-Public Use
  Company Number: 2008BH012174

PATIENT
  Sex: Female

DRUGS (5)
  1. CYTOXAN [Suspect]
     Indication: PANCREATIC CARCINOMA METASTATIC
     Dosage: 450 MG; UNK; IV
     Route: 042
     Dates: start: 20081103
  2. ALLOGENIC PANCREATIC VACCINE [Suspect]
     Indication: PANCREATIC CARCINOMA METASTATIC
     Dosage: IV
     Route: 042
  3. CETUXIMAB [Suspect]
     Indication: PANCREATIC CARCINOMA METASTATIC
     Dosage: 720 MG; IV
     Route: 042
  4. ATARAX [Concomitant]
  5. ZANTAC [Concomitant]

REACTIONS (1)
  - HYPERSENSITIVITY [None]
